FAERS Safety Report 6315035-1 (Version None)
Quarter: 2009Q3

REPORT INFORMATION
  Report Type: 
  Country: None (occurrence: None)
  Receive Date: 20090819
  Receipt Date: 20090720
  Transmission Date: 20100115
  Serious: No
  Sender: FDA-Public Use
  Company Number: US-BAYER-200912598BCC

PATIENT
  Age: 26 Year
  Sex: Female
  Weight: 44 kg

DRUGS (2)
  1. ALEVE [Suspect]
     Indication: HEADACHE
     Dosage: UNIT DOSE: 220 MG
     Route: 048
  2. ONE A DAY WOMEN'S [Suspect]
     Indication: VITAMIN SUPPLEMENTATION
     Dosage: TOOK 1 TABLET WITH AND WITHOUT FOOD
     Route: 048
     Dates: start: 20090718

REACTIONS (3)
  - HEADACHE [None]
  - NAUSEA [None]
  - VOMITING [None]
